FAERS Safety Report 7504322-7 (Version None)
Quarter: 2011Q2

REPORT INFORMATION
  Report Type: 
  Country: None (occurrence: None)
  Receive Date: 20110525
  Receipt Date: 20110513
  Transmission Date: 20111010
  Serious: Yes (Hospitalization, Other)
  Sender: FDA-Public Use
  Company Number: US-ELI_LILLY_AND_COMPANY-US201012003332

PATIENT
  Age: 15 Year
  Sex: Male

DRUGS (4)
  1. XANAX [Concomitant]
  2. CYMBALTA [Suspect]
     Dosage: UNK, UNKNOWN
     Route: 065
  3. CYMBALTA [Suspect]
     Indication: DEPRESSION
     Dosage: UNK, DAILY (1/D)
     Route: 065
  4. ALCOHOL [Concomitant]

REACTIONS (14)
  - HOSPITALISATION [None]
  - AGITATION [None]
  - DYSURIA [None]
  - MOOD SWINGS [None]
  - HOMICIDE [None]
  - SUICIDAL BEHAVIOUR [None]
  - INTENTIONAL OVERDOSE [None]
  - MENTAL DISORDER [None]
  - AKATHISIA [None]
  - OFF LABEL USE [None]
  - INSOMNIA [None]
  - SPEECH DISORDER [None]
  - AGGRESSION [None]
  - HYPOMANIA [None]
